FAERS Safety Report 19956595 (Version 1)
Quarter: 2021Q4

REPORT INFORMATION
  Report Type: Report from Study
  Country: None (occurrence: ZA)
  Receive Date: 20211014
  Receipt Date: 20211014
  Transmission Date: 20220303
  Serious: Yes (Hospitalization)
  Sender: FDA-Public Use
  Company Number: ZA-ABBVIE-21K-143-4116464-00

PATIENT
  Sex: Female

DRUGS (2)
  1. HUMIRA [Suspect]
     Active Substance: ADALIMUMAB
     Indication: Crohn^s disease
     Route: 058
     Dates: start: 20201117, end: 20210912
  2. METHOTREXATE [Concomitant]
     Active Substance: METHOTREXATE
     Indication: Crohn^s disease

REACTIONS (5)
  - Blood glucose increased [Recovering/Resolving]
  - Pneumonia [Recovering/Resolving]
  - Sinusitis [Recovering/Resolving]
  - Aortic valve calcification [Unknown]
  - Fungal skin infection [Not Recovered/Not Resolved]
